FAERS Safety Report 5259560-3 (Version None)
Quarter: 2007Q1

REPORT INFORMATION
  Report Type: 
  Country: None (occurrence: None)
  Receive Date: 20070306
  Receipt Date: 20070222
  Transmission Date: 20070707
  Serious: No
  Sender: FDA-Public Use
  Company Number: 2006-151733-NL

PATIENT
  Age: 55 Year
  Sex: Female

DRUGS (4)
  1. MIRTAZAPINE [Suspect]
     Indication: DEPRESSION
     Dosage: 15 MG ONCE/7.5 MG ONCE ORAL
     Route: 048
     Dates: start: 20061111, end: 20061112
  2. MIRTAZAPINE [Suspect]
     Indication: DEPRESSION
     Dosage: 15 MG ONCE/7.5 MG ONCE ORAL
     Route: 048
     Dates: start: 20061110
  3. ATENOLOL [Concomitant]
  4. DULOXETINE [Concomitant]

REACTIONS (9)
  - ANOREXIA [None]
  - ASTHENIA [None]
  - DIZZINESS [None]
  - FEELING COLD [None]
  - GAIT DISTURBANCE [None]
  - MALAISE [None]
  - MOVEMENT DISORDER [None]
  - PERIPHERAL COLDNESS [None]
  - SUICIDAL IDEATION [None]
